FAERS Safety Report 6638172-0 (Version None)
Quarter: 2010Q1

REPORT INFORMATION
  Report Type: 
  Country: None (occurrence: None)
  Receive Date: 20100317
  Receipt Date: 20100312
  Transmission Date: 20100710
  Serious: Yes (Hospitalization)
  Sender: FDA-Public Use
  Company Number: FR-CEPHALON-2010000289

PATIENT
  Sex: Male

DRUGS (2)
  1. ACTIQ [Suspect]
     Route: 002
  2. ACTIQ [Suspect]
     Route: 002

REACTIONS (2)
  - DRUG DEPENDENCE [None]
  - DRUG PRESCRIBING ERROR [None]
